FAERS Safety Report 10862964 (Version 2)
Quarter: 2015Q2

REPORT INFORMATION
  Report Type: Report from Study
  Country: BR (occurrence: BR)
  Receive Date: 20150223
  Receipt Date: 20150409
  Transmission Date: 20150821
  Serious: No
  Sender: FDA-Public Use
  Company Number: BR-SA-2015SA021238

PATIENT
  Age: 80 Year
  Sex: Male

DRUGS (6)
  1. DIOVAN [Concomitant]
     Active Substance: VALSARTAN
     Indication: HYPERTENSION
  2. SOLOSTAR [Concomitant]
     Active Substance: DEVICE
  3. LANTUS SOLOSTAR [Suspect]
     Active Substance: INSULIN GLARGINE
     Dosage: DOSE:10 UNIT(S)
     Route: 065
     Dates: start: 201410
  4. LANTUS [Suspect]
     Active Substance: INSULIN GLARGINE
     Route: 065
  5. HUMALOG [Suspect]
     Active Substance: INSULIN LISPRO
     Route: 065
     Dates: start: 2010
  6. LANTUS [Suspect]
     Active Substance: INSULIN GLARGINE
     Route: 065
     Dates: start: 2010

REACTIONS (5)
  - Drug administration error [Unknown]
  - Hypoglycaemia [Recovered/Resolved]
  - Headache [Recovered/Resolved]
  - Night sweats [Recovered/Resolved]
  - Drug administration error [Unknown]

NARRATIVE: CASE EVENT DATE: 201410
